FAERS Safety Report 5860947-6 (Version None)
Quarter: 2008Q3

REPORT INFORMATION
  Report Type: 
  Country: None (occurrence: None)
  Receive Date: 20080827
  Receipt Date: 20080818
  Transmission Date: 20090109
  Serious: Yes (Other)
  Sender: FDA-Public Use
  Company Number: US-AMGEN-US302798

PATIENT
  Age: 10 Year
  Sex: Female

DRUGS (12)
  1. ENBREL [Suspect]
     Indication: JUVENILE ARTHRITIS
     Route: 065
  2. KINERET [Suspect]
     Indication: JUVENILE ARTHRITIS
     Route: 065
  3. INFLIXIMAB [Suspect]
     Route: 065
  4. METHOTREXATE [Suspect]
     Route: 065
  5. ADALIMUMAB [Suspect]
     Route: 065
  6. PREDNISONE TAB [Suspect]
     Route: 065
  7. LEFLUNOMIDE [Suspect]
     Route: 065
  8. CYCLOPHOSPHAMIDE [Suspect]
     Route: 065
  9. THALIDOMIDE [Suspect]
     Route: 065
  10. RITUXIMAB [Suspect]
     Route: 065
  11. NAPROXEN [Concomitant]
     Route: 065
  12. METHADONE HCL [Concomitant]
     Route: 065

REACTIONS (3)
  - ANAPHYLACTIC REACTION [None]
  - DRUG INEFFECTIVE [None]
  - HODGKIN'S DISEASE [None]
